FAERS Safety Report 9181785 (Version 1)
Quarter: 2013Q1

REPORT INFORMATION
  Report Type: Report from Study
  Country: CA (occurrence: CA)
  Receive Date: 20130322
  Receipt Date: 20130322
  Transmission Date: 20140127
  Serious: Yes (Other)
  Sender: FDA-Public Use
  Company Number: CA-JNJFOC-20130307757

PATIENT
  Sex: Male
  Weight: 108 kg

DRUGS (4)
  1. REMICADE [Suspect]
     Indication: COLITIS ULCERATIVE
     Route: 042
     Dates: start: 20110331, end: 20130122
  2. TYLENOL [Concomitant]
     Indication: PREMEDICATION
     Route: 065
  3. SOLU CORTEF [Concomitant]
     Indication: PREMEDICATION
     Route: 042
  4. AERIUS [Concomitant]
     Indication: PREMEDICATION
     Route: 048

REACTIONS (1)
  - Intestinal operation [Unknown]
